FAERS Safety Report 8344741-2 (Version None)
Quarter: 2012Q2

REPORT INFORMATION
  Report Type: 
  Country: None (occurrence: None)
  Receive Date: 20120508
  Receipt Date: 20120427
  Transmission Date: 20120825
  Serious: Yes (Life-Threatening)
  Sender: FDA-Public Use
  Company Number: JP-BAYER-2011-092660

PATIENT
  Age: 76 Year
  Sex: Male
  Weight: 49 kg

DRUGS (6)
  1. CASODEX [Concomitant]
     Dosage: 80 MG, QD
     Route: 048
  2. NEXAVAR [Suspect]
     Indication: HEPATIC NEOPLASM MALIGNANT
     Dosage: 200 MG, BID
     Route: 048
     Dates: start: 20110921, end: 20110925
  3. BERIZYM [ENZYMES NOS] [Concomitant]
     Dosage: 1 G, TID
  4. TAMSULOSIN HCL [Concomitant]
     Dosage: 0.2 MG, QD
     Route: 048
  5. YODEL [Concomitant]
     Dosage: 3 DF, QD
     Route: 048
  6. NOVOLIN R [Concomitant]
     Dosage: 22 U, QD
     Route: 058

REACTIONS (1)
  - INTERSTITIAL LUNG DISEASE [None]
